FAERS Safety Report 14210781 (Version 1)
Quarter: 2017Q4

REPORT INFORMATION
  Report Type: Spontaneous
  Country: US (occurrence: US)
  Receive Date: 20171121
  Receipt Date: 20171121
  Transmission Date: 20180321
  Serious: Yes (Other)
  Sender: FDA-Public Use
  Company Number: US-JNJFOC-20150713824

PATIENT
  Age: 33 Year
  Sex: Male

DRUGS (3)
  1. RISPERDAL [Suspect]
     Active Substance: RISPERIDONE
     Indication: PSYCHOTIC DISORDER
     Dosage: 01 TO 03 MG
     Route: 048
     Dates: start: 19990219, end: 20010806
  2. PAXIL [Suspect]
     Active Substance: PAROXETINE HYDROCHLORIDE
     Indication: PRODUCT USED FOR UNKNOWN INDICATION
     Route: 065
     Dates: start: 199902
  3. RISPERDAL [Suspect]
     Active Substance: RISPERIDONE
     Indication: MOOD SWINGS
     Dosage: 01 TO 03 MG
     Route: 048
     Dates: start: 19990219, end: 20010806

REACTIONS (3)
  - Gynaecomastia [Unknown]
  - Obesity [Unknown]
  - Insomnia [Unknown]

NARRATIVE: CASE EVENT DATE: 199912
